FAERS Safety Report 11127791 (Version 1)
Quarter: 2015Q2

REPORT INFORMATION
  Report Type: Report from Study
  Country: US (occurrence: US)
  Receive Date: 20150521
  Receipt Date: 20150521
  Transmission Date: 20150821
  Serious: Yes (Hospitalization)
  Sender: FDA-Public Use
  Company Number: US-BIOGENIDEC-2015BI062036

PATIENT
  Age: 48 Year
  Sex: Female

DRUGS (3)
  1. TECFIDERA [Suspect]
     Active Substance: DIMETHYL FUMARATE
     Indication: MULTIPLE SCLEROSIS
     Dates: start: 20130806, end: 201401
  2. TECFIDERA [Suspect]
     Active Substance: DIMETHYL FUMARATE
     Indication: MULTIPLE SCLEROSIS
     Route: 048
     Dates: start: 201502
  3. METHOTREXATE [Concomitant]
     Active Substance: METHOTREXATE

REACTIONS (6)
  - Diarrhoea [Recovered/Resolved]
  - Night sweats [Not Recovered/Not Resolved]
  - Malaise [Unknown]
  - Pneumonia staphylococcal [Recovered/Resolved]
  - Pneumonia bacterial [Not Recovered/Not Resolved]
  - Pneumonia fungal [Recovered/Resolved]

NARRATIVE: CASE EVENT DATE: 201401
